FAERS Safety Report 10084021 (Version 1)
Quarter: 2014Q2

REPORT INFORMATION
  Report Type: Spontaneous
  Country: US (occurrence: US)
  Receive Date: 20140417
  Receipt Date: 20140417
  Transmission Date: 20141212
  Serious: No
  Sender: FDA-Public Use
  Company Number: US-ABBVIE-13P-163-1108129-00

PATIENT
  Age: 49 Year
  Sex: Female
  Weight: 77 kg

DRUGS (4)
  1. ZEMPLAR [Suspect]
     Indication: HYPERPARATHYROIDISM
     Dates: start: 20130408, end: 20130613
  2. ASPIRIN [Concomitant]
     Indication: CARDIOVASCULAR EVENT PROPHYLAXIS
  3. VITAMIN D [Concomitant]
     Indication: VITAMIN D DEFICIENCY
  4. FUROSEMIDE [Concomitant]
     Indication: FLUID RETENTION

REACTIONS (1)
  - Pruritus [Recovered/Resolved]
